FAERS Safety Report 17277353 (Version 1)
Quarter: 2020Q1

REPORT INFORMATION
  Report Type: Report from Study
  Country: GB (occurrence: GB)
  Receive Date: 20200116
  Receipt Date: 20200116
  Transmission Date: 20200409
  Serious: Yes (Hospitalization, Other)
  Sender: FDA-Public Use
  Company Number: GB-JNJFOC-20200116814

PATIENT
  Age: 53 Year
  Sex: Male

DRUGS (1)
  1. STELARA [Suspect]
     Active Substance: USTEKINUMAB
     Indication: PSORIASIS
     Dosage: ON WEEK 0 AS DIRECTED
     Route: 058
     Dates: start: 20181122

REACTIONS (4)
  - Leukaemia [Not Recovered/Not Resolved]
  - Pulmonary embolism [Unknown]
  - Loss of consciousness [Unknown]
  - Myelofibrosis [Unknown]

NARRATIVE: CASE EVENT DATE: 20200107
